FAERS Safety Report 5076481-X (Version None)
Quarter: 2006Q3

REPORT INFORMATION
  Report Type: 
  Country: None (occurrence: None)
  Receive Date: 20060810
  Receipt Date: 20060731
  Transmission Date: 20061208
  Serious: Yes (Other)
  Sender: FDA-Public Use
  Company Number: PHBS2006BR11685

PATIENT
  Age: 51 Year
  Sex: Female
  Weight: 64 kg

DRUGS (3)
  1. LEXOTAN [Concomitant]
     Indication: ARRHYTHMIA
     Route: 048
  2. CAPTOPRIL [Concomitant]
     Indication: HYPERTENSION
     Route: 048
  3. FORASEQ [Suspect]
     Indication: EMPHYSEMA
     Dosage: UNK, BID

REACTIONS (7)
  - HAEMORRHAGE [None]
  - MUSCLE SPASMS [None]
  - OBSTRUCTIVE AIRWAYS DISORDER [None]
  - PAIN IN EXTREMITY [None]
  - PALPITATIONS [None]
  - SOMNOLENCE [None]
  - TREMOR [None]
